FAERS Safety Report 15013809 (Version 1)
Quarter: 2018Q2

REPORT INFORMATION
  Report Type: Spontaneous
  Country: US (occurrence: US)
  Receive Date: 20180614
  Receipt Date: 20180614
  Transmission Date: 20180711
  Serious: No
  Sender: FDA-Public Use
  Company Number: US-VIFOR (INTERNATIONAL) INC.-VIT-2018-05971

PATIENT
  Sex: Male

DRUGS (20)
  1. TOPIRAMATE. [Concomitant]
     Active Substance: TOPIRAMATE
  2. CLOPIDOGREL BISULFATE. [Concomitant]
     Active Substance: CLOPIDOGREL BISULFATE
  3. ALLOPURINOL. [Concomitant]
     Active Substance: ALLOPURINOL
  4. LEVOTHYROXINE SODIUM. [Concomitant]
     Active Substance: LEVOTHYROXINE SODIUM
  5. VELTASSA [Suspect]
     Active Substance: PATIROMER
     Indication: HYPERKALAEMIA
     Route: 048
     Dates: start: 20160426
  6. TIZANIDINE HYDROCHLORIDE. [Concomitant]
     Active Substance: TIZANIDINE HYDROCHLORIDE
  7. TRAZODONE HYDROCHLORIDE. [Concomitant]
     Active Substance: TRAZODONE HYDROCHLORIDE
  8. METOPROLOL TARTRATE. [Concomitant]
     Active Substance: METOPROLOL TARTRATE
  9. AMITRIPTYLINE HYDROCHLORIDE. [Concomitant]
     Active Substance: AMITRIPTYLINE HYDROCHLORIDE
  10. FLUTICASONE PROPIONATE. [Concomitant]
     Active Substance: FLUTICASONE PROPIONATE
  11. VITAMINS NOS [Concomitant]
     Active Substance: VITAMINS
  12. PRAVASTATIN SODIUM. [Concomitant]
     Active Substance: PRAVASTATIN SODIUM
  13. LYRICA [Concomitant]
     Active Substance: PREGABALIN
  14. LORAZEPAM. [Concomitant]
     Active Substance: LORAZEPAM
  15. ASCORBIC ACID. [Concomitant]
     Active Substance: ASCORBIC ACID
  16. PERCOCET [Concomitant]
     Active Substance: ACETAMINOPHEN\OXYCODONE HYDROCHLORIDE
  17. PRIMIDONE. [Concomitant]
     Active Substance: PRIMIDONE
  18. COLECALCIFEROL [Concomitant]
     Active Substance: CHOLECALCIFEROL
  19. DOCUSATE SODIUM. [Concomitant]
     Active Substance: DOCUSATE SODIUM
  20. FENTANYL. [Concomitant]
     Active Substance: FENTANYL

REACTIONS (2)
  - No adverse event [Unknown]
  - Drug dose omission [Unknown]
